FAERS Safety Report 6896562-5 (Version None)
Quarter: 2010Q3

REPORT INFORMATION
  Report Type: 
  Country: None (occurrence: None)
  Receive Date: 20100802
  Receipt Date: 20090319
  Transmission Date: 20110219
  Serious: No
  Sender: FDA-Public Use
  Company Number: US-PFIZER INC-2009160486

PATIENT
  Sex: Female
  Weight: 52 kg

DRUGS (2)
  1. NEURONTIN [Suspect]
     Indication: BIPOLAR DISORDER
     Dosage: 3200 MG, 1X/DAY
     Route: 048
  2. SEROQUEL [Interacting]
     Indication: DEPRESSION
     Dosage: UNK

REACTIONS (6)
  - ANORGASMIA [None]
  - DRUG INTERACTION [None]
  - INCREASED APPETITE [None]
  - THIRST [None]
  - TREMOR [None]
  - WEIGHT INCREASED [None]
